FAERS Safety Report 5007925-7 (Version None)
Quarter: 2006Q2

REPORT INFORMATION
  Report Type: 
  Country: None (occurrence: None)
  Receive Date: 20060518
  Receipt Date: 20060503
  Transmission Date: 20061013
  Serious: Yes (Other)
  Sender: FDA-Public Use
  Company Number: GB200604001917

PATIENT
  Age: 11 Year
  Sex: Male
  Weight: 42 kg

DRUGS (2)
  1. STRATTERA [Suspect]
     Indication: TOURETTE'S DISORDER
     Dosage: 50 MG, ORAL
     Route: 048
     Dates: start: 20051101, end: 20060301
  2. METHYLPHENIDATE HCL [Concomitant]

REACTIONS (3)
  - INTENTIONAL SELF-INJURY [None]
  - LACERATION [None]
  - SUICIDAL IDEATION [None]
